FAERS Safety Report 25642705 (Version 1)
Quarter: 2025Q3

REPORT INFORMATION
  Report Type: Other
  Country: EU (occurrence: EU)
  Receive Date: 20250805
  Receipt Date: 20250805
  Transmission Date: 20251020
  Serious: Yes (Other)
  Sender: COREPHARMA LLC
  Company Number: EU-CorePharma LLC-2181834

PATIENT
  Age: 85 Year
  Sex: Female
  Weight: 68 kg

DRUGS (6)
  1. LOVASTATIN [Suspect]
     Active Substance: LOVASTATIN
     Indication: Dyslipidaemia
  2. DULOXETINE [Suspect]
     Active Substance: DULOXETINE
  3. ACENOCOUMAROL [Suspect]
     Active Substance: ACENOCOUMAROL
  4. TORSEMIDE [Suspect]
     Active Substance: TORSEMIDE
  5. DAPAGLIFLOZIN [Suspect]
     Active Substance: DAPAGLIFLOZIN
  6. METFORMIN [Suspect]
     Active Substance: METFORMIN HYDROCHLORIDE

REACTIONS (1)
  - Colitis microscopic [Recovered/Resolved]

NARRATIVE: CASE EVENT DATE: 20211001
